FAERS Safety Report 6707826-X (Version None)
Quarter: 2010Q2

REPORT INFORMATION
  Report Type: 
  Country: None (occurrence: None)
  Receive Date: 20100503
  Receipt Date: 20090629
  Transmission Date: 20101027
  Serious: No
  Sender: FDA-Public Use
  Company Number: US-ASTRAZENECA-2009UW18135

PATIENT
  Age: 83 Year
  Sex: Female
  Weight: 54.4 kg

DRUGS (6)
  1. NEXIUM [Suspect]
     Indication: GASTROOESOPHAGEAL REFLUX DISEASE
     Route: 048
  2. NEXIUM [Suspect]
     Route: 048
  3. DITROPAN [Suspect]
  4. CALCITONIN [Concomitant]
  5. NASONEX [Concomitant]
  6. VITAMINS [Concomitant]

REACTIONS (2)
  - DIZZINESS [None]
  - FALL [None]
